FAERS Safety Report 24726428 (Version 2)
Quarter: 2025Q1

REPORT INFORMATION
  Report Type: Spontaneous
  Country: US (occurrence: US)
  Receive Date: 20241212
  Receipt Date: 20250224
  Transmission Date: 20250409
  Serious: No
  Sender: Kenvue
  Company Number: US-KENVUE-20241104594

PATIENT
  Sex: Female

DRUGS (2)
  1. MENS ROGAINE EXTRA STRENGTH [Suspect]
     Active Substance: MINOXIDIL
     Indication: Alopecia
     Dosage: CAP FULL  ONCE A DAY
     Route: 061
     Dates: end: 202411
  2. MENS ROGAINE EXTRA STRENGTH [Suspect]
     Active Substance: MINOXIDIL
     Dosage: CAP FULL  ONCE A DAY
     Route: 061
     Dates: start: 202410, end: 202411

REACTIONS (6)
  - Application site dryness [Recovering/Resolving]
  - Poor quality product administered [Unknown]
  - Product physical consistency issue [Unknown]
  - Product use issue [Unknown]
  - Intentional product misuse [Unknown]
  - Product container issue [Unknown]

NARRATIVE: CASE EVENT DATE: 20241101
